FAERS Safety Report 4821052-0 (Version None)
Quarter: 2005Q4

REPORT INFORMATION
  Report Type: 
  Country: None (occurrence: None)
  Receive Date: 20051104
  Receipt Date: 20051025
  Transmission Date: 20060501
  Serious: Yes (Hospitalization)
  Sender: FDA-Public Use
  Company Number: US-ABBOTT-05P-163-0315061-00

PATIENT
  Sex: Female
  Weight: 80.812 kg

DRUGS (8)
  1. HUMIRA [Suspect]
     Indication: RHEUMATOID ARTHRITIS
     Route: 058
     Dates: start: 20050926
  2. BENACOL [Concomitant]
     Indication: DRUG USE FOR UNKNOWN INDICATION
     Route: 048
  3. HYDROXYCHLOROQUINE PHOSPHATE [Concomitant]
     Indication: RHEUMATOID ARTHRITIS
     Dosage: NOT REPORTED
  4. HYDROCODONE [Concomitant]
     Indication: PAIN
     Dosage: NOT REPORTED
  5. CYMBALTA [Concomitant]
     Indication: ANTIDEPRESSANT THERAPY
     Dosage: NOT REPORTED
  6. BENICAR HYDROCHLOROTHIAZIDE [Concomitant]
     Indication: DRUG USE FOR UNKNOWN INDICATION
     Dosage: 20/25 DAILY
  7. ZOLPIDEM TARTRATE [Concomitant]
     Indication: DRUG USE FOR UNKNOWN INDICATION
     Dosage: NOT REPORTED
  8. TRICOR 145 [Concomitant]
     Indication: DRUG USE FOR UNKNOWN INDICATION
     Dosage: NOT REPORTED

REACTIONS (13)
  - ANXIETY [None]
  - BLOOD ALKALINE PHOSPHATASE INCREASED [None]
  - BLOOD PRESSURE INCREASED [None]
  - CHEST PAIN [None]
  - ELECTROCARDIOGRAM ST-T CHANGE [None]
  - FEELING ABNORMAL [None]
  - HYPERSENSITIVITY [None]
  - INJECTION SITE SWELLING [None]
  - MALAISE [None]
  - PALPITATIONS [None]
  - SINUS TACHYCARDIA [None]
  - SUPRAVENTRICULAR TACHYCARDIA [None]
  - WHITE BLOOD CELL COUNT INCREASED [None]
